FAERS Safety Report 5886114-8 (Version None)
Quarter: 2008Q3

REPORT INFORMATION
  Report Type: 
  Country: None (occurrence: None)
  Receive Date: 20080917
  Receipt Date: 20080915
  Transmission Date: 20090109
  Serious: Yes (Other)
  Sender: FDA-Public Use
  Company Number: US-BAYER-200811802BCC

PATIENT
  Age: 76 Year
  Sex: Male
  Weight: 91 kg

DRUGS (4)
  1. ALEVE [Suspect]
     Indication: ARTHRITIS
     Route: 048
  2. ALEVE [Suspect]
     Route: 048
  3. ALEVE [Suspect]
     Route: 048
  4. IBUPROFEN [Suspect]
     Indication: ARTHRITIS
     Route: 048

REACTIONS (1)
  - RECTAL HAEMORRHAGE [None]
